FAERS Safety Report 9337718 (Version 1)
Quarter: 2013Q2

REPORT INFORMATION
  Report Type: Spontaneous
  Country: NZ (occurrence: NZ)
  Receive Date: 20130607
  Receipt Date: 20130607
  Transmission Date: 20140414
  Serious: Yes (Other)
  Sender: FDA-Public Use
  Company Number: NZ-BRISTOL-MYERS SQUIBB COMPANY-18998880

PATIENT
  Age: 60 Year
  Sex: Male

DRUGS (5)
  1. SAXAGLIPTIN [Suspect]
     Indication: DIABETES MELLITUS
     Route: 048
     Dates: start: 20130131
  2. LANTUS [Concomitant]
     Indication: DIABETES MELLITUS
     Dosage: 1DF:45UTS:ONG
     Route: 058
  3. METFORMIN [Concomitant]
     Indication: DIABETES MELLITUS
     Dosage: ONG
     Route: 048
  4. INHIBACE [Concomitant]
     Indication: HYPERTENSION
     Dosage: ONG
     Route: 048
  5. ATORVASTATIN [Concomitant]
     Indication: LIPIDS

REACTIONS (1)
  - Transient ischaemic attack [Recovered/Resolved]
